FAERS Safety Report 14597821 (Version 2)
Quarter: 2018Q2

REPORT INFORMATION
  Report Type: Spontaneous
  Country: US (occurrence: US)
  Receive Date: 20180305
  Receipt Date: 20180425
  Transmission Date: 20180711
  Serious: No
  Sender: FDA-Public Use
  Company Number: US-PFIZER INC-2018082546

PATIENT
  Sex: Male

DRUGS (1)
  1. DEPO-MEDROL [Suspect]
     Active Substance: METHYLPREDNISOLONE ACETATE
     Indication: SPONDYLITIS
     Dosage: UNK (INJECTION IN HIS NECK)
     Dates: start: 201802

REACTIONS (5)
  - Flushing [Unknown]
  - Burning sensation [Unknown]
  - Skin irritation [Unknown]
  - Paraesthesia [Unknown]
  - Injection site reaction [Unknown]

NARRATIVE: CASE EVENT DATE: 201802
